FAERS Safety Report 12873706 (Version 1)
Quarter: 2016Q4

REPORT INFORMATION
  Report Type: Spontaneous
  Country: NL (occurrence: NL)
  Receive Date: 20161021
  Receipt Date: 20161021
  Transmission Date: 20170207
  Serious: Yes (Life-Threatening, Hospitalization)
  Sender: FDA-Public Use
  Company Number: NL-JNJFOC-20161016439

PATIENT
  Age: 53 Year
  Sex: Female

DRUGS (2)
  1. HALOPERIDOL DECANOATE. [Suspect]
     Active Substance: HALOPERIDOL DECANOATE
     Indication: PSYCHOTIC DISORDER
     Route: 030
     Dates: start: 201603
  2. HALOPERIDOL DECANOATE. [Suspect]
     Active Substance: HALOPERIDOL DECANOATE
     Indication: PSYCHOTIC DISORDER
     Route: 030

REACTIONS (3)
  - Anxiety [Recovered/Resolved with Sequelae]
  - Suicide attempt [Recovered/Resolved with Sequelae]
  - Extrapyramidal disorder [Recovered/Resolved with Sequelae]

NARRATIVE: CASE EVENT DATE: 201604
